FAERS Safety Report 4542920-3 (Version None)
Quarter: 2004Q4

REPORT INFORMATION
  Report Type: 
  Country: None (occurrence: None)
  Receive Date: 20041229
  Receipt Date: 20041220
  Transmission Date: 20050328
  Serious: Yes (Hospitalization, Other)
  Sender: FDA-Public Use
  Company Number: 2004230212US

PATIENT
  Age: 81 Year
  Sex: Female

DRUGS (4)
  1. CLEOCIN HCL [Suspect]
     Indication: ABSCESS
     Dosage: 150 MG, ORAL
     Route: 048
     Dates: start: 20040218, end: 20040201
  2. LEVOTHYROXINE SODIUM [Concomitant]
  3. LANSOPRAZOLE [Concomitant]
  4. MULTIVITAMINS (ASCORBIC ACID/ERGOCALCIFEROL/FOLIC ACID/NICOTINAMIDE/PA [Concomitant]

REACTIONS (10)
  - ANOREXIA [None]
  - ASTHENIA [None]
  - DIARRHOEA [None]
  - DIFFICULTY IN WALKING [None]
  - FEELING ABNORMAL [None]
  - GASTROOESOPHAGEAL REFLUX DISEASE [None]
  - HIATUS HERNIA [None]
  - INTESTINAL ISCHAEMIA [None]
  - MUSCLE DISORDER [None]
  - WEIGHT DECREASED [None]
